FAERS Safety Report 17522122 (Version 1)
Quarter: 2020Q1

REPORT INFORMATION
  Report Type: Report from Study
  Country: CA (occurrence: CA)
  Receive Date: 20200310
  Receipt Date: 20200310
  Transmission Date: 20200409
  Serious: Yes (Other)
  Sender: FDA-Public Use
  Company Number: CA-PFIZER INC-2020101662

PATIENT
  Age: 56 Year
  Sex: Male
  Weight: 60 kg

DRUGS (16)
  1. ARTHROTEC [Suspect]
     Active Substance: DICLOFENAC SODIUM\MISOPROSTOL
     Dosage: 50 MG, 2X/DAY
     Route: 048
  2. SIMPONI [Suspect]
     Active Substance: GOLIMUMAB
     Dosage: 15 MG, MONTHLY
     Route: 058
  3. APO-MELOXICAM [Concomitant]
     Active Substance: MELOXICAM
     Dosage: 7.5 MG, UNK
     Route: 048
  4. NICOTINE POLACRILEX [Concomitant]
     Active Substance: NICOTINE
     Dosage: 2 MG, UNK
  5. FOLIC ACID. [Concomitant]
     Active Substance: FOLIC ACID
     Route: 048
  6. XELJANZ [Concomitant]
     Active Substance: TOFACITINIB CITRATE
     Dosage: 5 MG, 2X/DAY
  7. CYCLOCORT [Concomitant]
     Active Substance: AMCINONIDE
     Dosage: UNK
  8. METHOTREXATE SODIUM. [Suspect]
     Active Substance: METHOTREXATE SODIUM
     Dosage: 20 MG, WEEKLY
     Route: 058
  9. SIMPONI [Suspect]
     Active Substance: GOLIMUMAB
     Dosage: 50 MG, MONTHLY
     Route: 058
  10. HUMIRA [Suspect]
     Active Substance: ADALIMUMAB
     Indication: PSORIATIC ARTHROPATHY
     Route: 058
  11. BETAMETHASONE VALERATE. [Concomitant]
     Active Substance: BETAMETHASONE VALERATE
     Dosage: UNK
  12. MELOXICAM. [Concomitant]
     Active Substance: MELOXICAM
  13. VENTOLIN HFA [Concomitant]
     Active Substance: ALBUTEROL SULFATE
     Dosage: 100 UG, UNK
  14. NICOTINE. [Concomitant]
     Active Substance: NICOTINE
     Route: 062
  15. ARTHROTEC [Suspect]
     Active Substance: DICLOFENAC SODIUM\MISOPROSTOL
     Dosage: UNK, 3X/DAY
  16. AMCINONIDE. [Concomitant]
     Active Substance: AMCINONIDE
     Dosage: UNK
     Route: 061

REACTIONS (20)
  - Atelectasis [Unknown]
  - Fear of injection [Unknown]
  - Peptic ulcer [Unknown]
  - Bone erosion [Unknown]
  - Muscular weakness [Unknown]
  - Psoriasis [Unknown]
  - Pulmonary fibrosis [Unknown]
  - Skin disorder [Unknown]
  - Arthropathy [Unknown]
  - Swelling [Unknown]
  - Finger deformity [Unknown]
  - Grip strength decreased [Unknown]
  - Musculoskeletal stiffness [Unknown]
  - Nail disorder [Unknown]
  - Tuberculosis [Unknown]
  - Arthralgia [Unknown]
  - Hypertension [Unknown]
  - Joint instability [Unknown]
  - Psoriatic arthropathy [Unknown]
  - Pain in extremity [Unknown]
